FAERS Safety Report 22526606 (Version 1)
Quarter: 2023Q2

REPORT INFORMATION
  Report Type: Spontaneous
  Country: US (occurrence: None)
  Receive Date: 20230605
  Receipt Date: 20230605
  Transmission Date: 20230721
  Serious: Yes (Other)
  Sender: FDA-Public Use
  Company Number: None

PATIENT
  Age: 72 Year
  Sex: Female
  Weight: 74.84 kg

DRUGS (2)
  1. OXYBUTYNIN [Suspect]
     Active Substance: OXYBUTYNIN
  2. SOLIFENACIN [Suspect]
     Active Substance: SOLIFENACIN

REACTIONS (3)
  - Bladder discomfort [None]
  - Dysuria [None]
  - Micturition urgency [None]

NARRATIVE: CASE EVENT DATE: 20181116
